FAERS Safety Report 15890248 (Version 1)
Quarter: 2019Q1

REPORT INFORMATION
  Report Type: Spontaneous
  Country: US (occurrence: US)
  Receive Date: 20190109
  Receipt Date: 20190109
  Transmission Date: 20190417
  Serious: Yes (Other)
  Sender: FDA-Public Use
  Company Number: None

PATIENT
  Age: 67 Year
  Sex: Female
  Weight: 41.28 kg

DRUGS (1)
  1. MIRALAX [Suspect]
     Active Substance: POLYETHYLENE GLYCOL 3350
     Indication: BOWEL PREPARATION
     Dosage: ?          QUANTITY:17.9 OZ;OTHER FREQUENCY:AFTER SURGERY;?
     Route: 048
     Dates: start: 20181010, end: 20181120

REACTIONS (13)
  - Intestinal obstruction [None]
  - Oligodipsia [None]
  - Product prescribing issue [None]
  - Drug ineffective [None]
  - Abdominal pain [None]
  - Off label use [None]
  - Pain [None]
  - Post procedural complication [None]
  - Pollakiuria [None]
  - Renal impairment [None]
  - Feeding disorder [None]
  - Product complaint [None]
  - Product use issue [None]
